FAERS Safety Report 4400783-0 (Version None)
Quarter: 2004Q3

REPORT INFORMATION
  Report Type: 
  Country: None (occurrence: None)
  Receive Date: 20040907
  Receipt Date: 20030605
  Transmission Date: 20050211
  Serious: No
  Sender: FDA-Public Use
  Company Number: US-BRISTOL-MYERS SQUIBB COMPANY-12294377

PATIENT
  Age: 70 Year
  Sex: Female

DRUGS (3)
  1. COUMADIN [Suspect]
     Indication: ATRIAL FIBRILLATION
     Dosage: DOSAGE: BETWEEN 7.5MG AND 5MG DAILY ACCORDING TO INR
     Route: 048
     Dates: start: 20030402
  2. LIPITOR [Concomitant]
  3. METOPROLOL [Concomitant]

REACTIONS (1)
  - PAIN IN EXTREMITY [None]
